FAERS Safety Report 8522729-6 (Version None)
Quarter: 2012Q3

REPORT INFORMATION
  Report Type: 
  Country: None (occurrence: None)
  Receive Date: 20120719
  Receipt Date: 20120711
  Transmission Date: 20120928
  Serious: Yes (Other)
  Sender: FDA-Public Use
  Company Number: GB-GLAXOSMITHKLINE-B0815544A

PATIENT

DRUGS (2)
  1. POTIGA [Suspect]
     Indication: EPILEPSY
     Route: 065
  2. UNKNOWN MEDICATION [Concomitant]
     Indication: EPILEPSY

REACTIONS (2)
  - BLADDER DISORDER [None]
  - CONVULSION [None]
